FAERS Safety Report 9199897 (Version 1)
Quarter: 2013Q1

REPORT INFORMATION
  Report Type: Spontaneous
  Country: FR (occurrence: FR)
  Receive Date: 20130329
  Receipt Date: 20130329
  Transmission Date: 20140127
  Serious: Yes (Hospitalization)
  Sender: FDA-Public Use
  Company Number: FR-SANOFI-AVENTIS-2013SA031186

PATIENT
  Age: 40 Year
  Sex: Female

DRUGS (6)
  1. PLAQUENIL [Suspect]
     Indication: PRODUCT USED FOR UNKNOWN INDICATION
     Route: 065
     Dates: start: 200708, end: 20130119
  2. KARDEGIC [Concomitant]
  3. AMOXICILLIN [Concomitant]
     Dates: start: 201212
  4. PIVALONE [Concomitant]
     Dates: start: 201212
  5. TIAPROFENIC ACID [Concomitant]
  6. PARACETAMOL [Concomitant]

REACTIONS (4)
  - Pleural effusion [Recovered/Resolved]
  - Dyspnoea [Recovered/Resolved]
  - Chest pain [Recovered/Resolved]
  - Cough [Recovered/Resolved]
